FAERS Safety Report 6783865-8 (Version None)
Quarter: 2010Q2

REPORT INFORMATION
  Report Type: 
  Country: None (occurrence: None)
  Receive Date: 20100622
  Receipt Date: 20100614
  Transmission Date: 20101027
  Serious: Yes (Other)
  Sender: FDA-Public Use
  Company Number: JP-PFIZER INC-2010073832

PATIENT
  Sex: Female

DRUGS (3)
  1. DOXAZOSIN MESYLATE [Suspect]
     Dosage: 1 MG, 1X/DAY
     Route: 048
     Dates: end: 20100607
  2. METOPROLOL [Suspect]
     Dosage: UNK
     Route: 048
     Dates: end: 20100607
  3. IRBESARTAN [Concomitant]

REACTIONS (3)
  - ANOSMIA [None]
  - PAROSMIA [None]
  - RHINORRHOEA [None]
